FAERS Safety Report 9341313 (Version 1)
Quarter: 2013Q2

REPORT INFORMATION
  Report Type: Spontaneous
  Country: US (occurrence: None)
  Receive Date: 20130610
  Receipt Date: 20130610
  Transmission Date: 20140414
  Serious: Yes (Hospitalization, Other)
  Sender: FDA-Public Use
  Company Number: None

PATIENT
  Age: 82 Year
  Sex: Male
  Weight: 81.65 kg

DRUGS (1)
  1. AVASTIN [Suspect]
     Indication: PANCREATIC CARCINOMA
     Route: 040

REACTIONS (2)
  - Epistaxis [None]
  - Haemoglobin decreased [None]
